FAERS Safety Report 9330212 (Version 1)
Quarter: 2013Q2

REPORT INFORMATION
  Report Type: Spontaneous
  Country: FR (occurrence: FR)
  Receive Date: 20130604
  Receipt Date: 20130604
  Transmission Date: 20140414
  Serious: Yes (Hospitalization)
  Sender: FDA-Public Use
  Company Number: FR-GILEAD-2013-0076250

PATIENT
  Age: 63 Year
  Sex: Male

DRUGS (13)
  1. VISTIDE [Suspect]
     Indication: COLITIS
     Dosage: 5 MG/KG, UNK
     Route: 042
     Dates: start: 20130121, end: 20130208
  2. VISTIDE [Suspect]
     Dosage: 1 MG/KG, UNK
     Dates: end: 20130208
  3. ZYVOXID [Concomitant]
     Dosage: UNK
     Dates: start: 20130118, end: 20130203
  4. SIROLIMUS [Concomitant]
  5. ZELITREX [Concomitant]
  6. WELLVONE [Concomitant]
  7. CORDARONE [Concomitant]
  8. TIENAM [Concomitant]
  9. CIFLOX                             /00697201/ [Concomitant]
  10. CANCIDAS [Concomitant]
  11. FUROSEMIDE [Concomitant]
  12. BICARBONATE [Concomitant]
  13. BICARBONATE SODIUM [Concomitant]

REACTIONS (2)
  - Renal failure acute [Not Recovered/Not Resolved]
  - Renal tubular disorder [Not Recovered/Not Resolved]
